FAERS Safety Report 10219942 (Version 1)
Quarter: 2014Q2

REPORT INFORMATION
  Report Type: Spontaneous
  Country: US (occurrence: US)
  Receive Date: 20140605
  Receipt Date: 20140605
  Transmission Date: 20141212
  Serious: Yes (Death)
  Sender: FDA-Public Use
  Company Number: US-ABBVIE-14P-163-1243265-00

PATIENT
  Age: 29 Year
  Sex: Female
  Weight: 108.96 kg

DRUGS (6)
  1. HUMIRA [Suspect]
     Indication: RHEUMATOID ARTHRITIS
     Dates: start: 2007, end: 201405
  2. METHOTREXATE [Concomitant]
     Indication: RHEUMATOID ARTHRITIS
     Route: 048
     Dates: end: 201405
  3. TRAMADOL [Concomitant]
     Indication: PAIN
  4. METOPROLOL [Concomitant]
     Indication: HYPERTENSION
     Route: 048
     Dates: end: 201405
  5. CYCLOBENZAPRINE [Concomitant]
     Indication: PRODUCT USED FOR UNKNOWN INDICATION
     Route: 048
  6. LISINOPRIL [Concomitant]
     Indication: HYPERTENSION
     Route: 048
     Dates: end: 201405

REACTIONS (6)
  - Circulatory collapse [Fatal]
  - Dizziness [Fatal]
  - Hyperhidrosis [Fatal]
  - Feeling hot [Fatal]
  - Influenza like illness [Fatal]
  - Hypertension [Not Recovered/Not Resolved]
